FAERS Safety Report 8382882-4 (Version None)
Quarter: 2012Q2

REPORT INFORMATION
  Report Type: 
  Country: None (occurrence: None)
  Receive Date: 20120524
  Receipt Date: 20120515
  Transmission Date: 20120825
  Serious: Yes (Life-Threatening)
  Sender: FDA-Public Use
  Company Number: JP-CELGENEUS-087-50794-12052622

PATIENT
  Sex: Female
  Weight: 51 kg

DRUGS (12)
  1. KYTRIL [Concomitant]
     Route: 065
     Dates: start: 20110519, end: 20110523
  2. GASMOTIN [Concomitant]
     Route: 065
  3. LANSOPRAZOLE [Concomitant]
     Route: 065
  4. LASIX [Concomitant]
     Route: 065
  5. TENORMIN [Concomitant]
     Route: 065
  6. AMLODIPINE [Concomitant]
     Route: 065
  7. VIDAZA [Suspect]
     Dosage: 75 MILLIGRAM/SQ. METER
     Route: 041
     Dates: start: 20110519, end: 20110523
  8. MAXIPIME [Concomitant]
     Route: 065
     Dates: start: 20110522, end: 20110607
  9. MAXIPIME [Concomitant]
     Route: 065
     Dates: start: 20110627, end: 20110705
  10. LEVOTHYROXINE SODIUM [Concomitant]
     Route: 065
  11. VIDAZA [Suspect]
     Dosage: 75 MILLIGRAM/SQ. METER
     Route: 041
     Dates: start: 20110627, end: 20110701
  12. ALLOPURINOL [Concomitant]
     Route: 065

REACTIONS (1)
  - DEVICE RELATED INFECTION [None]
